FAERS Safety Report 24782714 (Version 2)
Quarter: 2025Q1

REPORT INFORMATION
  Report Type: Spontaneous
  Country: FR (occurrence: FR)
  Receive Date: 20241227
  Receipt Date: 20250310
  Transmission Date: 20250409
  Serious: Yes (Hospitalization, Other)
  Sender: PFIZER
  Company Number: None

PATIENT
  Age: 5 Year
  Sex: Female
  Weight: 20.5 kg

DRUGS (12)
  1. DEPO-MEDROL [Suspect]
     Active Substance: METHYLPREDNISOLONE ACETATE
     Indication: B-cell type acute leukaemia
     Route: 037
     Dates: start: 20241126, end: 20241129
  2. VINCRISTINE SULFATE [Suspect]
     Active Substance: VINCRISTINE SULFATE
     Indication: B-cell type acute leukaemia
     Route: 042
     Dates: start: 20241126, end: 20241126
  3. ICLUSIG [Suspect]
     Active Substance: PONATINIB HYDROCHLORIDE
     Indication: B-cell type acute leukaemia
     Dosage: 15 MG, 1X/DAY
     Route: 048
     Dates: start: 20241126, end: 20241203
  4. METHOTREXATE SODIUM [Suspect]
     Active Substance: METHOTREXATE SODIUM
     Indication: B-cell type acute leukaemia
     Route: 037
     Dates: start: 20241122, end: 20241129
  5. CYTARABINE [Suspect]
     Active Substance: CYTARABINE
     Indication: B-cell type acute leukaemia
     Route: 037
     Dates: start: 20241126, end: 20241129
  6. DEXAMETHASONE SODIUM PHOSPHATE [Suspect]
     Active Substance: DEXAMETHASONE SODIUM PHOSPHATE
     Indication: B-cell type acute leukaemia
     Dosage: 16 MG, 1X/DAY
     Route: 048
     Dates: start: 20241126, end: 20241127
  7. TRIMETHOPRIM [Concomitant]
     Active Substance: TRIMETHOPRIM
  8. SULFAMETHOXAZOLE [Concomitant]
     Active Substance: SULFAMETHOXAZOLE
  9. CHLORPROMAZINE [Concomitant]
     Active Substance: CHLORPROMAZINE
  10. AMPHOTERICIN B [Concomitant]
     Active Substance: AMPHOTERICIN B
  11. CALCIUM CHLORIDE [Concomitant]
     Active Substance: CALCIUM CHLORIDE
  12. CHOLECALCIFEROL [Concomitant]
     Active Substance: CHOLECALCIFEROL

REACTIONS (2)
  - Off label use [Recovered/Resolved]
  - Hepatic cytolysis [Recovered/Resolved with Sequelae]

NARRATIVE: CASE EVENT DATE: 20241126
